FAERS Safety Report 25049220 (Version 1)
Quarter: 2025Q1

REPORT INFORMATION
  Report Type: Report from Study
  Country: US (occurrence: US)
  Receive Date: 20250307
  Receipt Date: 20250307
  Transmission Date: 20250409
  Serious: Yes (Death)
  Sender: pharmaAND
  Company Number: US-Pharmaand-2025000182

PATIENT
  Age: 89 Year
  Sex: Male

DRUGS (1)
  1. RUBRACA [Suspect]
     Active Substance: RUCAPARIB CAMSYLATE
     Indication: Prostate cancer
     Dosage: 600 MG TWICE DAILY
     Route: 048
     Dates: start: 202501

REACTIONS (1)
  - Death [Fatal]

NARRATIVE: CASE EVENT DATE: 20250218
